FAERS Safety Report 6384484-8 (Version None)
Quarter: 2009Q3

REPORT INFORMATION
  Report Type: 
  Country: None (occurrence: None)
  Receive Date: 20090928
  Receipt Date: 20090813
  Transmission Date: 20100115
  Serious: Yes (Other)
  Sender: FDA-Public Use
  Company Number: E 284

PATIENT
  Sex: Female

DRUGS (2)
  1. SULFAMETHOXAZOLE AND TRIMETHOPRIM [Suspect]
     Indication: PROPHYLAXIS URINARY TRACT INFECTION
     Dosage: ONE, PO, QD
     Route: 048
     Dates: start: 20080718, end: 20090721
  2. AMLODIPINE [Concomitant]

REACTIONS (4)
  - DRY MOUTH [None]
  - HYPERSENSITIVITY [None]
  - OEDEMA [None]
  - RASH [None]
